APPROVED DRUG PRODUCT: LOTRISONE
Active Ingredient: BETAMETHASONE DIPROPIONATE; CLOTRIMAZOLE
Strength: EQ 0.05% BASE;1% **Federal Register determination that product was not discontinued or withdrawn for safety or effectiveness reasons**
Dosage Form/Route: LOTION;TOPICAL
Application: N020010 | Product #001
Applicant: MERCK SHARP AND DOHME CORP
Approved: Dec 8, 2000 | RLD: Yes | RS: No | Type: DISCN